FAERS Safety Report 9155244 (Version 1)
Quarter: 2013Q1

REPORT INFORMATION
  Report Type: Spontaneous
  Country: FR (occurrence: FR)
  Receive Date: 20130311
  Receipt Date: 20130311
  Transmission Date: 20140127
  Serious: Yes (Other)
  Sender: FDA-Public Use
  Company Number: FR-JNJFOC-20130301458

PATIENT
  Age: 55 Year
  Sex: Female

DRUGS (7)
  1. XARELTO [Suspect]
     Indication: EMBOLISM VENOUS
     Route: 048
     Dates: start: 20130201
  2. XARELTO [Suspect]
     Indication: DEEP VEIN THROMBOSIS
     Route: 048
     Dates: start: 20130201
  3. METFORMINE [Concomitant]
     Indication: DIABETES MELLITUS
     Route: 065
  4. ALTIZIDE [Concomitant]
     Route: 065
  5. ATENOLOL [Concomitant]
     Indication: HYPERTENSION
     Route: 065
  6. EZETROL [Concomitant]
     Route: 065
  7. SPIRONOLACTONE [Concomitant]
     Route: 065

REACTIONS (6)
  - Transaminases increased [Unknown]
  - Gamma-glutamyltransferase increased [Unknown]
  - Blood bilirubin increased [Unknown]
  - Dyspepsia [Recovering/Resolving]
  - Nausea [Recovering/Resolving]
  - Medication error [Unknown]
